FAERS Safety Report 5802864-3 (Version None)
Quarter: 2008Q3

REPORT INFORMATION
  Report Type: 
  Country: None (occurrence: None)
  Receive Date: 20080708
  Receipt Date: 20080627
  Transmission Date: 20090109
  Serious: Yes (Hospitalization, Other)
  Sender: FDA-Public Use
  Company Number: GB-JNJFOC-20080700096

PATIENT
  Sex: Female
  Weight: 48 kg

DRUGS (10)
  1. REMICADE [Suspect]
     Indication: STILL'S DISEASE ADULT ONSET
     Route: 042
  2. METHOTREXATE [Concomitant]
  3. PREDNISOLONE [Concomitant]
  4. ALENDRONATE SODIUM [Concomitant]
  5. CALCICHEW [Concomitant]
  6. DIHYDROCODEINE [Concomitant]
  7. FOLIC ACID [Concomitant]
  8. LODINE [Concomitant]
  9. OMEPRAZOLE [Concomitant]
  10. TRAMADOL HCL [Concomitant]

REACTIONS (2)
  - JUVENILE ARTHRITIS [None]
  - MALAISE [None]
